FAERS Safety Report 15531225 (Version 1)
Quarter: 2018Q4

REPORT INFORMATION
  Report Type: Spontaneous
  Country: FR (occurrence: FR)
  Receive Date: 20181019
  Receipt Date: 20181019
  Transmission Date: 20190205
  Serious: Yes (Hospitalization)
  Sender: FDA-Public Use
  Company Number: FR-TEVA-2018-FR-965904

PATIENT
  Age: 79 Year
  Sex: Female

DRUGS (12)
  1. TASIGNA 200 MG, G?LULE [Concomitant]
     Dosage: 1 DOSAGE FORMS DAILY;
     Route: 048
  2. IMOVANE [Concomitant]
     Active Substance: ZOPICLONE
     Dosage: 1 DOSAGE FORMS DAILY;
     Route: 048
  3. ALLOPURINOL. [Suspect]
     Active Substance: ALLOPURINOL
     Indication: GOUT
     Dosage: 100 MILLIGRAM DAILY;
     Route: 048
     Dates: start: 20180524, end: 20180616
  4. BISOPROLOL QUIVER 2,5 MG, COMPRIM? S?CABLE [Concomitant]
     Active Substance: BISOPROLOL FUMARATE
     Dosage: 1 DOSAGE FORMS DAILY;
     Route: 048
  5. INEXIUM 20 MG, COMPRIM? GASTRO-R?SISTANT [Concomitant]
     Active Substance: ESOMEPRAZOLE MAGNESIUM
     Dosage: 1 DOSAGE FORMS DAILY;
     Route: 048
  6. AMLOR 5 MG, G?LULE [Concomitant]
     Active Substance: AMLODIPINE BESYLATE
     Dosage: 2 DOSAGE FORMS DAILY;
     Route: 048
  7. LYRICA [Suspect]
     Active Substance: PREGABALIN
     Indication: PAIN
     Dosage: 1 DOSAGE FORMS DAILY;
     Route: 048
     Dates: start: 20180428, end: 20180616
  8. DOLIPRANE [Concomitant]
     Active Substance: ACETAMINOPHEN
     Dosage: IF NECESSARY
     Route: 048
  9. LIPTRUZET 10 MG/20 MG, COMPRIM? PELLICUL? [Concomitant]
     Dosage: 1 DOSAGE FORMS DAILY;
     Route: 048
  10. VENLAFAXINE [Concomitant]
     Active Substance: VENLAFAXINE HYDROCHLORIDE
     Dosage: 37.5 MILLIGRAM DAILY;
     Route: 048
  11. LASILIX RETARD 60 MG, G?LULE [Concomitant]
     Active Substance: FUROSEMIDE
     Dosage: 1 DOSAGE FORMS DAILY;
     Route: 048
  12. ASPIRINE PROTECT 100 MG, COMPRIM? GASTRO-R?SISTANT [Concomitant]
     Active Substance: ASPIRIN
     Dosage: 1 DOSAGE FORMS DAILY;
     Route: 048

REACTIONS (1)
  - Drug reaction with eosinophilia and systemic symptoms [Recovered/Resolved]

NARRATIVE: CASE EVENT DATE: 20180604
